FAERS Safety Report 23443920 (Version 6)
Quarter: 2025Q1

REPORT INFORMATION
  Report Type: Report from Study
  Country: US (occurrence: US)
  Receive Date: 20240125
  Receipt Date: 20250115
  Transmission Date: 20250409
  Serious: Yes (Other)
  Sender: TAKEDA
  Company Number: US-TAKEDA-2024TUS006849

PATIENT
  Age: 66 Year
  Sex: Male
  Weight: 76.644 kg

DRUGS (4)
  1. BRIGATINIB [Suspect]
     Active Substance: BRIGATINIB
     Indication: Lung neoplasm malignant
  2. BRIGATINIB [Suspect]
     Active Substance: BRIGATINIB
  3. BRIGATINIB [Suspect]
     Active Substance: BRIGATINIB
     Dosage: 180 MILLIGRAM, QD
  4. BRIGATINIB [Suspect]
     Active Substance: BRIGATINIB
     Dosage: 180 MILLIGRAM, QD

REACTIONS (13)
  - Colitis ulcerative [Unknown]
  - Cardiovascular disorder [Unknown]
  - Loss of personal independence in daily activities [Unknown]
  - Product use issue [Unknown]
  - Product dose omission issue [Unknown]
  - Headache [Unknown]
  - Visual impairment [Unknown]
  - Fatigue [Unknown]
  - Myalgia [Unknown]
  - Arthralgia [Unknown]
  - Blood pressure increased [Unknown]
  - Pain [Unknown]
  - Abdominal pain upper [Unknown]

NARRATIVE: CASE EVENT DATE: 20241201
